FAERS Safety Report 9519558 (Version 1)
Quarter: 2013Q3

REPORT INFORMATION
  Report Type: Spontaneous
  Country: GB (occurrence: GB)
  Receive Date: 20130912
  Receipt Date: 20130912
  Transmission Date: 20140515
  Serious: Yes (Disabling)
  Sender: FDA-Public Use
  Company Number: PHHY2013GB097523

PATIENT
  Age: 71 Year
  Sex: Male
  Weight: 84.5 kg

DRUGS (9)
  1. PHENOXYMETHYLPENICILLIN [Suspect]
     Dates: start: 20130812
  2. ATENOLOL [Concomitant]
     Dates: start: 20130503, end: 20130628
  3. ALLOPURINOL [Concomitant]
     Dates: start: 20130503, end: 20130628
  4. CLOBETASONE BUTYRATE [Concomitant]
     Dates: start: 20130503, end: 20130531
  5. RAMIPRIL [Concomitant]
     Dates: start: 20130503, end: 20130628
  6. OMEPRAZOLE [Concomitant]
     Dates: start: 20130503, end: 20130628
  7. AMLODIPINE [Concomitant]
     Dates: start: 20130809
  8. PREDNISOLONE [Concomitant]
     Dates: start: 20130812
  9. CO-CODAMOL [Concomitant]
     Dates: start: 20130816

REACTIONS (3)
  - Vasculitis necrotising [Unknown]
  - Rash generalised [Unknown]
  - Angioedema [Unknown]
